FAERS Safety Report 8836276 (Version 1)
Quarter: 2012Q4

REPORT INFORMATION
  Report Type: 
  Country: IS (occurrence: IS)
  Receive Date: 20121011
  Receipt Date: 20121011
  Transmission Date: 20130627
  Serious: Yes (Other)
  Sender: FDA-Public Use
  Company Number: PHHY2012IS088792

PATIENT
  Sex: Female

DRUGS (10)
  1. CLOZAPINE [Suspect]
     Dosage: 125 mg, in evening
     Route: 048
  2. SERTRALINE [Suspect]
  3. PALIPERIDONE [Concomitant]
  4. LEVOMEPROMAZINE [Concomitant]
  5. ZOPICLONE [Concomitant]
  6. FEXOFENADINE [Concomitant]
  7. HYDROXYZINE [Concomitant]
  8. DOXAZOSIN [Concomitant]
  9. ENALAPRIL [Concomitant]
  10. HYDROCHLOROTHIAZIDE [Concomitant]

REACTIONS (2)
  - Arrhythmia [Unknown]
  - Drug interaction [Unknown]
